FAERS Safety Report 21779297 (Version 1)
Quarter: 2022Q4

REPORT INFORMATION
  Report Type: Spontaneous
  Country: JP (occurrence: JP)
  Receive Date: 20221226
  Receipt Date: 20221226
  Transmission Date: 20230113
  Serious: Yes (Other)
  Sender: FDA-Public Use
  Company Number: JP-ABBVIE-4250205

PATIENT

DRUGS (1)
  1. RINVOQ [Suspect]
     Active Substance: UPADACITINIB
     Indication: Product used for unknown indication
     Route: 048

REACTIONS (5)
  - Pancytopenia [Unknown]
  - White blood cell count decreased [Unknown]
  - Myelosuppression [Unknown]
  - Neutrophil count decreased [Unknown]
  - Platelet count decreased [Unknown]
